FAERS Safety Report 11029543 (Version 1)
Quarter: 2015Q2

REPORT INFORMATION
  Report Type: Spontaneous
  Country: ZA (occurrence: None)
  Receive Date: 20150413
  Receipt Date: 20150413
  Transmission Date: 20150821
  Serious: Yes (Disabling, Other)
  Sender: FDA-Public Use
  Company Number: None

PATIENT
  Age: 51 Year
  Sex: Female
  Weight: 61 kg

DRUGS (7)
  1. CIPRO [Suspect]
     Active Substance: CIPROFLOXACIN HYDROCHLORIDE
     Indication: URINARY TRACT INFECTION
     Dosage: TAKEN BY MOUTH, 1 PILL
  2. MAGNESIUM OIL [Concomitant]
  3. OMEGA 6 [Concomitant]
  4. METHYL PROTECT [Concomitant]
  5. PROBIOTICS [Concomitant]
     Active Substance: PROBIOTICS NOS
  6. GREEN TEA EXTRACT [Concomitant]
  7. VITAMIN D [Concomitant]
     Active Substance: CHOLECALCIFEROL

REACTIONS (5)
  - Neuropathy peripheral [None]
  - Tendonitis [None]
  - Anxiety [None]
  - Pain [None]
  - Panic attack [None]

NARRATIVE: CASE EVENT DATE: 20120703
